FAERS Safety Report 10282768 (Version 2)
Quarter: 2014Q3

REPORT INFORMATION
  Report Type: Spontaneous
  Country: US (occurrence: US)
  Receive Date: 20140708
  Receipt Date: 20140717
  Transmission Date: 20150326
  Serious: Yes (Other)
  Sender: FDA-Public Use
  Company Number: US-AMGEN-USASP2014050701

PATIENT
  Age: 65 Year
  Sex: Female
  Weight: 59.41 kg

DRUGS (11)
  1. ENBREL [Suspect]
     Active Substance: ETANERCEPT
     Indication: PRODUCT USED FOR UNKNOWN INDICATION
     Dosage: 50 MG, QWK
     Route: 058
  2. PAXIL [Concomitant]
     Active Substance: PAROXETINE HYDROCHLORIDE
     Dosage: 10 MG, UNK
  3. FOLIC ACID. [Concomitant]
     Active Substance: FOLIC ACID
     Dosage: 1 MG, UNK
  4. PRILOSEC [Concomitant]
     Active Substance: OMEPRAZOLE MAGNESIUM
     Dosage: 20 MG, UNK
  5. PREDNISONE. [Concomitant]
     Active Substance: PREDNISONE
     Dosage: 10 MG, UNK
  6. D-3 [Concomitant]
     Active Substance: CHOLECALCIFEROL
     Dosage: UNK
  7. LORAZEPAM. [Concomitant]
     Active Substance: LORAZEPAM
     Dosage: 1 MG, UNK
  8. IBANDRONATE [Concomitant]
     Active Substance: IBANDRONATE SODIUM
     Dosage: 150 MG, UNK
  9. GLUCOSAMINE [Concomitant]
     Active Substance: GLUCOSAMINE
     Dosage: 750 MG, UNK
  10. OMEGA 3                            /06816701/ [Concomitant]
     Dosage: 340 MG, UNK
  11. OSCAL                              /00514701/ [Concomitant]
     Dosage: 500/TAB 200

REACTIONS (2)
  - Urinary tract infection [Unknown]
  - Pain of skin [Unknown]
